FAERS Safety Report 18527921 (Version 1)
Quarter: 2020Q4

REPORT INFORMATION
  Report Type: Spontaneous
  Country: IL (occurrence: IL)
  Receive Date: 20201120
  Receipt Date: 20201120
  Transmission Date: 20210114
  Serious: Yes (Other)
  Sender: FDA-Public Use
  Company Number: IL-BAYER-2020-250099

PATIENT

DRUGS (4)
  1. XOFIGO [Suspect]
     Active Substance: RADIUM RA-223 DICHLORIDE
     Dosage: UNK
     Dates: start: 20201028, end: 20201028
  2. XOFIGO [Suspect]
     Active Substance: RADIUM RA-223 DICHLORIDE
     Dosage: UNK
     Dates: start: 20200723, end: 20200723
  3. XOFIGO [Suspect]
     Active Substance: RADIUM RA-223 DICHLORIDE
     Dosage: UNK
     Dates: start: 20200902, end: 20200902
  4. XOFIGO [Suspect]
     Active Substance: RADIUM RA-223 DICHLORIDE
     Dosage: UNK
     Dates: start: 20200930, end: 20200930

REACTIONS (1)
  - Disease progression [None]
